FAERS Safety Report 5632562-0 (Version None)
Quarter: 2008Q1

REPORT INFORMATION
  Report Type: 
  Country: None (occurrence: None)
  Receive Date: 20080220
  Receipt Date: 20080213
  Transmission Date: 20080703
  Serious: Yes (Hospitalization)
  Sender: FDA-Public Use
  Company Number: US-PFIZER INC-2005100086

PATIENT
  Sex: Male
  Weight: 80 kg

DRUGS (2)
  1. CELEBREX [Suspect]
     Indication: ARTHRITIS
  2. REGLAN [Concomitant]

REACTIONS (1)
  - MYOCARDIAL INFARCTION [None]
